FAERS Safety Report 15148892 (Version 1)
Quarter: 2018Q3

REPORT INFORMATION
  Report Type: Spontaneous
  Country: JP (occurrence: JP)
  Receive Date: 20180716
  Receipt Date: 20180716
  Transmission Date: 20181010
  Serious: Yes (Hospitalization)
  Sender: FDA-Public Use
  Company Number: JP-PFIZER INC-2018280231

PATIENT
  Age: 6 Decade
  Sex: Male

DRUGS (13)
  1. BUPRENORPHINE. [Interacting]
     Active Substance: BUPRENORPHINE
     Dosage: 20 MG, WEEKLY
  2. ETHYL LOFLAZEPATE [Interacting]
     Active Substance: ETHYL LOFLAZEPATE
     Dosage: UNK
     Route: 048
  3. BUPRENORPHINE. [Interacting]
     Active Substance: BUPRENORPHINE
     Indication: MUSCULOSKELETAL PAIN
     Dosage: 5 MG, WEEKLY
  4. ZOLPIDEM TARTRATE. [Interacting]
     Active Substance: ZOLPIDEM TARTRATE
     Dosage: UNK
     Route: 048
  5. FLUVOXAMINE MALEATE. [Interacting]
     Active Substance: FLUVOXAMINE MALEATE
     Dosage: UNK
     Route: 048
  6. VONOPRAZAN [Interacting]
     Active Substance: VONOPRAZAN
     Dosage: UNK
     Route: 048
  7. BROTIZOLAM [Interacting]
     Active Substance: BROTIZOLAM
     Dosage: UNK
     Route: 048
  8. TRIAZOLAM. [Suspect]
     Active Substance: TRIAZOLAM
     Dosage: UNK
     Route: 048
  9. ZOTEPINE [Interacting]
     Active Substance: ZOTEPINE
     Dosage: UNK
     Route: 048
  10. TRAMADOL/ACETAMINOPHEN [Interacting]
     Active Substance: ACETAMINOPHEN\TRAMADOL
     Indication: PAIN
     Dosage: UNK
     Route: 048
  11. QUETIAPINE FUMARATE. [Interacting]
     Active Substance: QUETIAPINE FUMARATE
     Dosage: UNK
     Route: 048
  12. BUPRENORPHINE. [Interacting]
     Active Substance: BUPRENORPHINE
     Indication: PAIN
     Dosage: 10 MG, WEEKLY
  13. ZOPICLONE [Interacting]
     Active Substance: ZOPICLONE
     Dosage: UNK
     Route: 048

REACTIONS (4)
  - Drug interaction [Recovering/Resolving]
  - Rhabdomyolysis [Recovering/Resolving]
  - Drug level increased [Recovering/Resolving]
  - Acute kidney injury [Recovering/Resolving]
